FAERS Safety Report 5641988-0 (Version None)
Quarter: 2008Q1

REPORT INFORMATION
  Report Type: 
  Country: None (occurrence: None)
  Receive Date: 20080131
  Receipt Date: 20071015
  Transmission Date: 20080703
  Serious: No
  Sender: FDA-Public Use
  Company Number: 163-21880-07100810

PATIENT
  Sex: Female

DRUGS (3)
  1. REVLIMID [Suspect]
     Indication: MULTIPLE MYELOMA
     Dosage: 5 MG, DAILY X 21 DAYS, 1 IN 1 D,  ORAL
     Route: 048
     Dates: start: 20061127, end: 20070201
  2. REVLIMID [Suspect]
     Indication: MULTIPLE MYELOMA
     Dosage: 5 MG, DAILY X 21 DAYS, 1 IN 1 D,  ORAL
     Route: 048
     Dates: start: 20070301, end: 20070501
  3. REVLIMID [Suspect]
     Indication: MULTIPLE MYELOMA
     Dosage: 5 MG, DAILY X 21 DAYS, 1 IN 1 D,  ORAL
     Route: 048
     Dates: start: 20070501

REACTIONS (2)
  - ASTHENIA [None]
  - FATIGUE [None]
